FAERS Safety Report 13859102 (Version 5)
Quarter: 2018Q3

REPORT INFORMATION
  Report Type: Spontaneous
  Country: NL (occurrence: NL)
  Receive Date: 20170811
  Receipt Date: 20180920
  Transmission Date: 20181010
  Serious: Yes (Other)
  Sender: FDA-Public Use
  Company Number: NL-ACCORD-056972

PATIENT
  Age: 78 Year
  Sex: Male
  Weight: 80 kg

DRUGS (5)
  1. ASCAL [Concomitant]
     Dosage: 15 MG 06?JUN?2017 TO 17?JUL?2017, 1000 MG, 20 MG
     Route: 048
  2. FOLIUMZUUR [Concomitant]
     Active Substance: FOLIC ACID
     Dosage: 5 MG/WK?1000 MG/D, 20 MG/D
     Route: 048
     Dates: start: 20030218
  3. INJEXATE [Suspect]
     Active Substance: METHOTREXATE SODIUM
     Indication: RHEUMATOID ARTHRITIS
     Dosage: 15 MG/WK
     Route: 058
     Dates: start: 20170606, end: 20170717
  4. PARACETAMOL [Suspect]
     Active Substance: ACETAMINOPHEN
     Indication: PAIN
     Route: 048
  5. PANTOZOL [Concomitant]
     Active Substance: PANTOPRAZOLE SODIUM
     Dosage: 20 MG DD?5 MG FROM 8?FEB?2003
     Route: 048

REACTIONS (12)
  - Libido decreased [Unknown]
  - Vomiting [Unknown]
  - Hypersomnia [Unknown]
  - Alanine aminotransferase increased [Recovering/Resolving]
  - Gamma-glutamyltransferase increased [Not Recovered/Not Resolved]
  - Hepatic function abnormal [Unknown]
  - Aspartate aminotransferase increased [Recovering/Resolving]
  - Fatigue [Unknown]
  - Drug effect decreased [Unknown]
  - Weight decreased [Unknown]
  - Decreased appetite [Unknown]
  - Product formulation issue [Unknown]

NARRATIVE: CASE EVENT DATE: 20170710
